FAERS Safety Report 24363295 (Version 1)
Quarter: 2024Q3

REPORT INFORMATION
  Report Type: Spontaneous
  Country: US (occurrence: US)
  Receive Date: 20240925
  Receipt Date: 20240925
  Transmission Date: 20241016
  Serious: No
  Sender: JOHNSON AND JOHNSON
  Company Number: US-JNJFOC-20240936783

PATIENT
  Age: 59 Year
  Sex: Male

DRUGS (2)
  1. STELARA [Suspect]
     Active Substance: USTEKINUMAB
     Indication: Colitis ulcerative
     Route: 058
     Dates: start: 202402
  2. STELARA [Suspect]
     Active Substance: USTEKINUMAB

REACTIONS (10)
  - Device issue [Unknown]
  - Injection site haemorrhage [Recovered/Resolved]
  - Dyskinesia [Unknown]
  - Paraesthesia [Unknown]
  - Poor quality sleep [Unknown]
  - Hypoacusis [Unknown]
  - Vision blurred [Unknown]
  - Areflexia [Unknown]
  - Asthenia [Unknown]
  - Inflammation [Unknown]

NARRATIVE: CASE EVENT DATE: 20240201
